FAERS Safety Report 7532584-9 (Version None)
Quarter: 2011Q2

REPORT INFORMATION
  Report Type: 
  Country: None (occurrence: None)
  Receive Date: 20110608
  Receipt Date: 20110602
  Transmission Date: 20111010
  Serious: Yes (Life-Threatening)
  Sender: FDA-Public Use
  Company Number: PHHY2011US28839

PATIENT
  Sex: Female

DRUGS (7)
  1. SANDOSTATIN LAR [Suspect]
     Dosage: 30 MG, QMO
     Route: 030
     Dates: start: 20110301, end: 20110301
  2. SANDOSTATIN [Concomitant]
     Indication: CARCINOID SYNDROME
     Dates: start: 20110201, end: 20110301
  3. SANDOSTATIN LAR [Suspect]
     Indication: CARCINOID SYNDROME
     Dosage: 50 MG, QMO
     Route: 030
     Dates: start: 20110101, end: 20110101
  4. SANDOSTATIN [Concomitant]
     Dosage: 1 G, Q6H
     Dates: start: 20110301, end: 20110416
  5. SANDOSTATIN LAR [Suspect]
     Dosage: 50 MG, QMO
     Route: 030
  6. SANDOSTATIN LAR [Suspect]
     Dosage: 20 MG, QMO
     Route: 030
     Dates: start: 20110201, end: 20110201
  7. SANDOSTATIN LAR [Suspect]
     Dosage: 30 MG, QMO
     Route: 030
     Dates: start: 20110201, end: 20110201

REACTIONS (6)
  - FATIGUE [None]
  - NEOPLASM MALIGNANT [None]
  - DYSPNOEA [None]
  - DIARRHOEA [None]
  - WHEEZING [None]
  - CARCINOID TUMOUR PULMONARY [None]
